FAERS Safety Report 16019690 (Version 1)
Quarter: 2019Q1

REPORT INFORMATION
  Report Type: Spontaneous
  Country: US (occurrence: US)
  Receive Date: 20190228
  Receipt Date: 20190228
  Transmission Date: 20190418
  Serious: No
  Sender: FDA-Public Use
  Company Number: US-VIFOR (INTERNATIONAL) INC.-VIT-2019-01455

PATIENT
  Sex: Female
  Weight: 72 kg

DRUGS (5)
  1. MIRCERA [Suspect]
     Active Substance: METHOXY POLYETHYLENE GLYCOL-EPOETIN BETA
     Indication: PRODUCT USED FOR UNKNOWN INDICATION
     Dosage: 2 DOSES
  2. ARANESP [Concomitant]
     Active Substance: DARBEPOETIN ALFA
  3. LORAZEPAM. [Concomitant]
     Active Substance: LORAZEPAM
  4. RENVELA [Concomitant]
     Active Substance: SEVELAMER CARBONATE
  5. SINGULAIR [Concomitant]
     Active Substance: MONTELUKAST SODIUM

REACTIONS (1)
  - Pruritus [Unknown]

NARRATIVE: CASE EVENT DATE: 20180814
